FAERS Safety Report 5948181-2 (Version None)
Quarter: 2008Q4

REPORT INFORMATION
  Report Type: 
  Country: None (occurrence: None)
  Receive Date: 20081021
  Receipt Date: 20080208
  Transmission Date: 20090506
  Serious: Yes (Other)
  Sender: FDA-Public Use
  Company Number: HQWYE935316AUG05

PATIENT
  Age: 86 Year
  Sex: Female
  Weight: 65.83 kg

DRUGS (3)
  1. PREMARIN [Suspect]
     Indication: HORMONE REPLACEMENT THERAPY
     Dosage: 0.3MG AND THE FREQUENCY WAS UNKNOWN
     Dates: start: 19730601, end: 20040801
  2. PREMARIN [Suspect]
     Indication: MENOPAUSAL SYMPTOMS
     Dosage: 0.3MG AND THE FREQUENCY WAS UNKNOWN
     Dates: start: 19730601, end: 20040801
  3. PROVERA [Suspect]
     Indication: HORMONE REPLACEMENT THERAPY

REACTIONS (1)
  - BREAST CANCER [None]
